FAERS Safety Report 19738070 (Version 1)
Quarter: 2021Q3

REPORT INFORMATION
  Report Type: Spontaneous
  Country: US (occurrence: US)
  Receive Date: 20210820
  Receipt Date: 20210820
  Transmission Date: 20211014
  Serious: Yes (Hospitalization, Other)
  Sender: FDA-Public Use
  Company Number: None

PATIENT
  Age: 52 Year
  Sex: Female
  Weight: 73.4 kg

DRUGS (8)
  1. FLUOCLONIDE [Concomitant]
  2. ATOVAQUONE (MEPRON) [Concomitant]
  3. CLOTRIMAZOLE. [Concomitant]
     Active Substance: CLOTRIMAZOLE
  4. SYNTHROID [Concomitant]
     Active Substance: LEVOTHYROXINE SODIUM
  5. LIALDA [Concomitant]
     Active Substance: MESALAMINE
  6. PREDNISONE (DELLASONE) [Concomitant]
  7. NIVOLUMAB 480MG IV Q4 WEEKS [Suspect]
     Active Substance: NIVOLUMAB
     Indication: LEUKOPLAKIA ORAL
     Dosage: ?          OTHER FREQUENCY:Q28 DAYS, 4X;OTHER ROUTE:PIV WITH + BR OVER 60MIN?
     Dates: start: 20210420, end: 20210618
  8. PROZAC [Concomitant]
     Active Substance: FLUOXETINE HYDROCHLORIDE

REACTIONS (13)
  - Diarrhoea [None]
  - Faecal calprotectin increased [None]
  - Pyrexia [None]
  - Myalgia [None]
  - Cholecystitis [None]
  - Chromaturia [None]
  - Dizziness [None]
  - Hepatitis viral [None]
  - Immune-mediated enterocolitis [None]
  - Ocular icterus [None]
  - Immune-mediated hepatitis [None]
  - Fatigue [None]
  - Toxicity to various agents [None]

NARRATIVE: CASE EVENT DATE: 20210820
